FAERS Safety Report 19033926 (Version 4)
Quarter: 2021Q3

REPORT INFORMATION
  Report Type: Report from Study
  Country: AT (occurrence: AT)
  Receive Date: 20210319
  Receipt Date: 20210730
  Transmission Date: 20211014
  Serious: Yes (Other)
  Sender: FDA-Public Use
  Company Number: AT-PFIZER INC-2021272747

PATIENT
  Age: 79 Year
  Sex: Female
  Weight: 48 kg

DRUGS (32)
  1. VENDAL [MORPHINE HYDROCHLORIDE] [Concomitant]
     Indication: DYSPNOEA
     Dates: start: 20191111
  2. PACLITAXEL. [Suspect]
     Active Substance: PACLITAXEL
     Indication: BREAST CANCER FEMALE
     Dosage: 113.69 MG, WEEKLY, MOST RECENT DOSE 14/SEP/2018
     Route: 042
     Dates: start: 20180810
  3. SERACTIL [Concomitant]
     Active Substance: DEXIBUPROFEN
     Indication: OSTEONECROSIS OF JAW
     Dates: start: 20190725, end: 20191015
  4. PASPERTIN [METOCLOPRAMIDE HYDROCHLORIDE] [Concomitant]
     Active Substance: METOCLOPRAMIDE HYDROCHLORIDE
     Indication: NAUSEA
     Dates: start: 20191108, end: 20191115
  5. TEMESTA [LORAZEPAM] [Concomitant]
     Active Substance: LORAZEPAM
     Dosage: UNK
  6. MOLAXOLE [Concomitant]
     Active Substance: POLYETHYLENE GLYCOL 3350\POTASSIUM CHLORIDE\SODIUM BICARBONATE\SODIUM CHLORIDE
     Dates: start: 20191115
  7. ANTIFLAT [Concomitant]
     Dosage: UNK
     Dates: start: 20181126
  8. CIPROXINE [CIPROFLOXACIN] [Concomitant]
     Indication: GASTROENTERITIS RADIATION
     Dates: start: 20181118
  9. TAZONAM [Concomitant]
     Active Substance: TAZOBACTAM
     Indication: INFECTION
     Dates: start: 20191102, end: 20191113
  10. PARKEMED [Concomitant]
     Active Substance: MEFENAMIC ACID
     Indication: ARTHRALGIA
     Dosage: UNK
     Dates: start: 20180914
  11. TRASTUZUMAB. [Suspect]
     Active Substance: TRASTUZUMAB
     Dosage: 384 MG, EVERY 3 WEEKS
     Route: 042
     Dates: start: 20180928, end: 20180928
  12. TRASTUZUMAB EMTANSINE [Suspect]
     Active Substance: ADO-TRASTUZUMAB EMTANSINE
     Indication: BREAST CANCER FEMALE
     Dosage: 154 MG, EVERY 3 WEEKS
     Route: 042
     Dates: start: 20190704, end: 20190704
  13. MYCOSTATIN [Concomitant]
     Active Substance: NYSTATIN
     Indication: MUCOSAL INFLAMMATION
     Dates: start: 20190819
  14. PALBOCICLIB [Suspect]
     Active Substance: PALBOCICLIB
     Indication: BREAST CANCER FEMALE
     Dosage: 125 MG, MOST RECENT DOSE 18/OCT/2019
     Route: 048
     Dates: start: 20190919
  15. NOVALGINA [Concomitant]
     Active Substance: METAMIZOLE SODIUM
     Dates: start: 20181126, end: 20191103
  16. TRASTUZUMAB. [Suspect]
     Active Substance: TRASTUZUMAB
     Indication: BREAST CANCER FEMALE
     Dosage: 384 MG, EVERY 3 WEEKS
     Route: 042
     Dates: start: 20180810, end: 20180831
  17. PERTUZUMAB. [Suspect]
     Active Substance: PERTUZUMAB
     Indication: BREAST CANCER FEMALE
     Dosage: 840 MG, EVERY 3 WEEKS, MOST RECENT DOSE PRIOR TO THE EVENT ON 31AUG2018
     Route: 042
     Dates: start: 20180810
  18. FULVESTRANT. [Suspect]
     Active Substance: FULVESTRANT
     Indication: BREAST CANCER FEMALE
     Dosage: 500 MG, FREQUENCY: 4 WEEKS
     Route: 030
     Dates: start: 20190919, end: 20191112
  19. KONAKION [Concomitant]
     Active Substance: PHYTONADIONE
     Dates: start: 20191115
  20. ENTEROBENE [Concomitant]
     Indication: DIARRHOEA
     Dosage: UNK
     Dates: start: 20181127
  21. TRASTUZUMAB. [Suspect]
     Active Substance: TRASTUZUMAB
     Dosage: 276 MG, EVERY 3 WEEKS
     Route: 042
     Dates: start: 20181019, end: 20181019
  22. NAB?PACLITAXEL [Suspect]
     Active Substance: PACLITAXEL
     Indication: BREAST CANCER FEMALE
     Dosage: 142.11 MG, WEEKLY, MOST RECENT DOSE PRIOR TO THE EVENT: 19OCT2018
     Route: 042
     Dates: start: 20180928, end: 20181005
  23. LASIX [Concomitant]
     Active Substance: FUROSEMIDE
     Indication: OEDEMA PERIPHERAL
     Dates: start: 20191106, end: 20191115
  24. AVELOX [Concomitant]
     Active Substance: MOXIFLOXACIN HYDROCHLORIDE
     Indication: OSTEONECROSIS OF JAW
     Dates: start: 20190919, end: 20191101
  25. FORTECORTIN [DEXAMETHASONE] [Concomitant]
     Active Substance: DEXAMETHASONE
     Dates: start: 20191115
  26. LETROZOLE. [Suspect]
     Active Substance: LETROZOLE
     Indication: BREAST CANCER FEMALE
     Dosage: 2.5 MG, 1X/DAY, MOST RECENT DOSE ON 13JUN2019
     Route: 048
     Dates: start: 20181029
  27. GUTTALAX [SODIUM PICOSULFATE] [Concomitant]
     Active Substance: SODIUM PICOSULFATE
     Dates: start: 20191115
  28. CEOLAT [Concomitant]
     Dates: start: 20191115
  29. TAMOXIFEN [Suspect]
     Active Substance: TAMOXIFEN
     Indication: BREAST CANCER FEMALE
     Dosage: 20 MG
     Route: 048
     Dates: start: 20190819, end: 20190827
  30. CAPHOSOL [CALCIUM CHLORIDE;SODIUM CHLORIDE;SODIUM PHOSPHATE DIBASIC;SO [Concomitant]
     Indication: MUCOSAL INFLAMMATION
     Dates: start: 20180921
  31. TRITTICO [Concomitant]
     Active Substance: TRAZODONE HYDROCHLORIDE
     Dosage: UNK
  32. PANTOLOC [PANTOPRAZOLE] [Concomitant]
     Active Substance: PANTOPRAZOLE SODIUM
     Indication: ABDOMINAL PAIN UPPER
     Dates: start: 20181109, end: 20191101

REACTIONS (3)
  - White blood cell count decreased [Recovered/Resolved]
  - Ascites [Recovering/Resolving]
  - Neutrophil count decreased [Recovered/Resolved]

NARRATIVE: CASE EVENT DATE: 20191004
